FAERS Safety Report 16127771 (Version 1)
Quarter: 2019Q1

REPORT INFORMATION
  Report Type: Spontaneous
  Country: US (occurrence: US)
  Receive Date: 20190223
  Receipt Date: 20190223
  Transmission Date: 20190418
  Serious: No
  Sender: FDA-Public Use
  Company Number: None

PATIENT
  Age: 43 Year
  Sex: Female

DRUGS (1)
  1. GLATIRAMER PFS 40MG INJ (12/BOX) [Suspect]
     Active Substance: GLATIRAMER ACETATE
     Dosage: ?          OTHER ROUTE:OTHER?
     Route: 058
     Dates: start: 20190117

REACTIONS (4)
  - Swollen tongue [None]
  - Product substitution issue [None]
  - Lymphadenopathy [None]
  - Pharyngeal oedema [None]

NARRATIVE: CASE EVENT DATE: 20190223
